FAERS Safety Report 16921617 (Version 4)
Quarter: 2019Q4

REPORT INFORMATION
  Report Type: Spontaneous
  Country: CH (occurrence: CH)
  Receive Date: 20191015
  Receipt Date: 20191111
  Transmission Date: 20200122
  Serious: Yes (Death)
  Sender: FDA-Public Use
  Company Number: CH-EXELIXIS-CABO-19021408

PATIENT
  Sex: Male

DRUGS (7)
  1. TARGIN [Concomitant]
     Active Substance: NALOXONE HYDROCHLORIDE\OXYCODONE HYDROCHLORIDE
  2. CALCIMAGON [Concomitant]
     Active Substance: CALCIUM
  3. NOVALGIN [Concomitant]
  4. XGEVA [Concomitant]
     Active Substance: DENOSUMAB
  5. LIXIANA [Concomitant]
     Active Substance: EDOXABAN TOSYLATE
  6. BRUFEN [Concomitant]
     Active Substance: IBUPROFEN
  7. CABOMETYX [Suspect]
     Active Substance: CABOZANTINIB S-MALATE
     Indication: MALIGNANT NEOPLASM OF RENAL PELVIS
     Dosage: UNK
     Dates: start: 20190525, end: 20190715

REACTIONS (3)
  - Malignant neoplasm progression [Fatal]
  - End stage renal disease [Fatal]
  - Off label use [Unknown]

NARRATIVE: CASE EVENT DATE: 20190715
